FAERS Safety Report 17789147 (Version 1)
Quarter: 2020Q2

REPORT INFORMATION
  Report Type: Spontaneous
  Country: CN (occurrence: CN)
  Receive Date: 20200515
  Receipt Date: 20200515
  Transmission Date: 20200714
  Serious: Yes (Other)
  Sender: FDA-Public Use
  Company Number: CN-ROCHE-2598802

PATIENT
  Age: 38 Year
  Sex: Female
  Weight: 61 kg

DRUGS (3)
  1. HERCEPTIN [Suspect]
     Active Substance: TRASTUZUMAB
     Indication: INVASIVE BREAST CARCINOMA
     Dosage: INITIAL 488MG, FOLLOW BY 366MG
     Route: 065
  2. PERJETA [Suspect]
     Active Substance: PERTUZUMAB
     Indication: INVASIVE BREAST CARCINOMA
     Dosage: INITIAL 840 MG, FOLLOW BY 420 MG
     Route: 065
  3. NAB-PACLITAXEL [Concomitant]
     Active Substance: PACLITAXEL
     Indication: INVASIVE BREAST CARCINOMA
     Route: 065

REACTIONS (1)
  - Pneumonia [Recovering/Resolving]
